FAERS Safety Report 6000274-X (Version None)
Quarter: 2008Q4

REPORT INFORMATION
  Report Type: 
  Country: None (occurrence: None)
  Receive Date: 20081126
  Receipt Date: 20080617
  Transmission Date: 20090506
  Serious: Yes (Other)
  Sender: FDA-Public Use
  Company Number: 2008BH006353

PATIENT
  Age: 63 Year
  Sex: Female
  Weight: 75.2971 kg

DRUGS (2)
  1. DIGOXIN [Suspect]
     Indication: CARDIAC FAILURE CONGESTIVE
     Dosage: 0.25 MG; EVERY 6 HR; IV
     Route: 042
     Dates: start: 20080607, end: 20080607
  2. DIGOXIN [Suspect]
     Indication: CARDIAC FAILURE CONGESTIVE
     Dosage: 0.125 MG; PO
     Route: 048
     Dates: start: 20080608, end: 20080608

REACTIONS (1)
  - THERAPEUTIC AGENT TOXICITY [None]
